FAERS Safety Report 7811349-4 (Version None)
Quarter: 2011Q4

REPORT INFORMATION
  Report Type: 
  Country: None (occurrence: None)
  Receive Date: 20111011
  Receipt Date: 20111003
  Transmission Date: 20120403
  Serious: Yes (Hospitalization, Other)
  Sender: FDA-Public Use
  Company Number: TPA2011A06172

PATIENT
  Age: 68 Year
  Sex: Male
  Weight: 101.1521 kg

DRUGS (10)
  1. ACTOS [Suspect]
     Indication: TYPE 2 DIABETES MELLITUS
     Dosage: 45 MG, 1 IN 1 D, PER ORAL
     Route: 048
     Dates: start: 20050101, end: 20110801
  2. LISINOPRIL [Concomitant]
  3. GLIPIZIDE [Concomitant]
  4. FLOMAX [Concomitant]
  5. ZETIA [Concomitant]
  6. SIMVASTATIN [Concomitant]
  7. METFORMIN HCL [Concomitant]
  8. TRILIPIX (FENOFIBRATE) [Concomitant]
  9. LINCOCIN [Concomitant]
  10. KETOROLAC (KETOROLAC) [Concomitant]

REACTIONS (1)
  - BLADDER TRANSITIONAL CELL CARCINOMA [None]
